FAERS Safety Report 6608164-6 (Version None)
Quarter: 2010Q1

REPORT INFORMATION
  Report Type: 
  Country: None (occurrence: None)
  Receive Date: 20100301
  Receipt Date: 20100215
  Transmission Date: 20100710
  Serious: Yes (Death)
  Sender: FDA-Public Use
  Company Number: US-JNJFOC-20100209988

PATIENT
  Sex: Male

DRUGS (3)
  1. FENTANYL-100 [Suspect]
     Indication: DRUG USE FOR UNKNOWN INDICATION
     Route: 065
  2. DIAZEPAM [Concomitant]
  3. ALPRAZOLAM [Concomitant]

REACTIONS (2)
  - ANALGESIC DRUG LEVEL INCREASED [None]
  - DEATH [None]
